FAERS Safety Report 11594481 (Version 1)
Quarter: 2015Q4

REPORT INFORMATION
  Report Type: Spontaneous
  Country: US (occurrence: US)
  Receive Date: 20151005
  Receipt Date: 20151005
  Transmission Date: 20160304
  Serious: Yes (Hospitalization, Other)
  Sender: FDA-Public Use
  Company Number: US-AMGEN-USASP2015102162

PATIENT
  Sex: Male

DRUGS (1)
  1. NEULASTA [Suspect]
     Active Substance: PEGFILGRASTIM
     Indication: PRODUCT USED FOR UNKNOWN INDICATION
     Dosage: UNK UNK, AFTER CHEMO
     Route: 065

REACTIONS (7)
  - Loss of consciousness [Unknown]
  - Skin injury [Unknown]
  - Dysstasia [Unknown]
  - Dizziness [Unknown]
  - Bedridden [Unknown]
  - Mobility decreased [Unknown]
  - Fatigue [Unknown]
